FAERS Safety Report 4902405-9 (Version None)
Quarter: 2006Q1

REPORT INFORMATION
  Report Type: 
  Country: None (occurrence: None)
  Receive Date: 20060207
  Receipt Date: 20060123
  Transmission Date: 20060701
  Serious: Yes (Other)
  Sender: FDA-Public Use
  Company Number: PHEH2006US01228

PATIENT
  Age: 68 Year
  Sex: Female

DRUGS (5)
  1. ELIDEL [Suspect]
     Indication: ROSACEA
     Dosage: UNK, BID
     Route: 061
     Dates: start: 20041001, end: 20050101
  2. SYNTHROID [Concomitant]
  3. VYTORIN [Concomitant]
  4. OCUVITE [Concomitant]
  5. CENTRUM [Concomitant]

REACTIONS (4)
  - APPLICATION SITE ERYTHEMA [None]
  - APPLICATION SITE IRRITATION [None]
  - BASAL CELL CARCINOMA [None]
  - MICROGRAPHIC SKIN SURGERY [None]
